FAERS Safety Report 7098526-8 (Version None)
Quarter: 2010Q4

REPORT INFORMATION
  Report Type: 
  Country: None (occurrence: None)
  Receive Date: 20101112
  Receipt Date: 20101103
  Transmission Date: 20110411
  Serious: Yes (Life-Threatening)
  Sender: FDA-Public Use
  Company Number: DE-GENENTECH-309232

PATIENT
  Age: 56 Year
  Sex: Female
  Weight: 86 kg

DRUGS (1)
  1. RITUXIMAB [Suspect]
     Indication: B-CELL LYMPHOMA
     Dosage: 375 MG/M2, UNK
     Route: 042

REACTIONS (8)
  - BACTERIAL INFECTION [None]
  - DYSPNOEA [None]
  - HYPOKALAEMIA [None]
  - LEUKOPENIA [None]
  - NEUTROPENIA [None]
  - PAIN [None]
  - THROMBOCYTOPENIA [None]
  - VIRAL INFECTION [None]
